FAERS Safety Report 19517043 (Version 2)
Quarter: 2021Q3

REPORT INFORMATION
  Report Type: Other
  Country: CA (occurrence: CA)
  Receive Date: 20210711
  Receipt Date: 20210816
  Transmission Date: 20211014
  Serious: Yes (Other)
  Sender: FDA-Public Use
  Company Number: CA-CELLTRION INC.-2021CA009192

PATIENT

DRUGS (8)
  1. SYNTHROID [Concomitant]
     Active Substance: LEVOTHYROXINE SODIUM
     Dosage: UNK
  2. LAPELGA [Concomitant]
     Active Substance: PEGFILGRASTIM
     Dosage: UNK
  3. LIPITOR [Concomitant]
     Active Substance: ATORVASTATIN CALCIUM
     Dosage: UNK
     Route: 065
  4. TRASTUZUMAB (UNKNOWN) [Suspect]
     Active Substance: TRASTUZUMAB
     Indication: HER2 POSITIVE BREAST CANCER
     Dosage: UNK
     Route: 065
  5. TAXOL [Suspect]
     Active Substance: PACLITAXEL
     Indication: HER2 POSITIVE BREAST CANCER
     Dosage: UNK
     Route: 065
  6. PERJETA [Suspect]
     Active Substance: PERTUZUMAB
     Indication: HER2 POSITIVE BREAST CANCER
     Dosage: 840.0 MILLIGRAM
     Route: 042
  7. MAVIK [Concomitant]
     Active Substance: TRANDOLAPRIL
     Dosage: UNK
  8. PERJETA [Suspect]
     Active Substance: PERTUZUMAB
     Indication: HER2 POSITIVE BREAST CANCER
     Dosage: 420.0 MILLIGRAM, 1 EVERY 3 WEEKS
     Route: 042

REACTIONS (6)
  - Parathyroid disorder [Unknown]
  - Endocrine disorder [Unknown]
  - Upper-airway cough syndrome [Unknown]
  - Hypoparathyroidism [Unknown]
  - Blood calcium increased [Unknown]
  - Diarrhoea [Unknown]
